FAERS Safety Report 8493390-4 (Version None)
Quarter: 2012Q2

REPORT INFORMATION
  Report Type: 
  Country: None (occurrence: None)
  Receive Date: 20120402
  Receipt Date: 20090121
  Transmission Date: 20120825
  Serious: Yes (Other)
  Sender: FDA-Public Use
  Company Number: PHEH2009US00998

PATIENT
  Age: 78 Year
  Sex: Female

DRUGS (3)
  1. EXFORGE [Suspect]
     Indication: HYPERTENSION
     Dosage: 5/320 MG QD, ORAL, 5/160 MG QD, ORAL
     Route: 048
     Dates: start: 20090113, end: 20090122
  2. EXFORGE [Suspect]
     Indication: HYPERTENSION
     Dosage: 5/320 MG QD, ORAL, 5/160 MG QD, ORAL
     Route: 048
     Dates: start: 20081231, end: 20090113
  3. NASAREL [Concomitant]

REACTIONS (5)
  - MUSCLE SPASMS [None]
  - HOT FLUSH [None]
  - DIZZINESS [None]
  - GAIT DISTURBANCE [None]
  - BEDRIDDEN [None]
